FAERS Safety Report 21212424 (Version 2)
Quarter: 2022Q3

REPORT INFORMATION
  Report Type: Report from Study
  Country: EG (occurrence: EG)
  Receive Date: 20220815
  Receipt Date: 20220816
  Transmission Date: 20221027
  Serious: Yes (Other)
  Sender: FDA-Public Use
  Company Number: EG-NOVARTISPH-NVSC2022EG182437

PATIENT
  Age: 47 Year
  Sex: Female

DRUGS (5)
  1. GILENYA [Suspect]
     Active Substance: FINGOLIMOD HYDROCHLORIDE
     Indication: Multiple sclerosis
     Dosage: 0.5 MG, QOD
     Route: 048
  2. GILENYA [Suspect]
     Active Substance: FINGOLIMOD HYDROCHLORIDE
     Dosage: 0.5 MG, QD
     Route: 048
     Dates: start: 20220507, end: 20220809
  3. OSTEOCARE [Concomitant]
     Active Substance: CALCIUM\CHOLECALCIFEROL\MAGNESIUM\ZINC
     Indication: Supplementation therapy
     Dosage: 1 DOSAGE FORM, QD
     Route: 048
     Dates: start: 202205
  4. BENFOTIAMINE\CYANOCOBALAMIN\PYRIDOXINE HYDROCHLORIDE [Concomitant]
     Active Substance: BENFOTIAMINE\CYANOCOBALAMIN\PYRIDOXINE HYDROCHLORIDE
     Indication: Supplementation therapy
     Dosage: 1 DOSAGE FORM, QD
     Route: 048
     Dates: start: 20220801
  5. OMEGA 3 [Concomitant]
     Active Substance: CAPSAICIN
     Indication: Supplementation therapy
     Dosage: 1 DOSAGE FORM, QD
     Route: 048
     Dates: start: 2019

REACTIONS (14)
  - Hepatic pain [Not Recovered/Not Resolved]
  - Condition aggravated [Not Recovered/Not Resolved]
  - Dysgeusia [Not Recovered/Not Resolved]
  - Gastritis [Not Recovered/Not Resolved]
  - Cardiac murmur [Not Recovered/Not Resolved]
  - Angina pectoris [Not Recovered/Not Resolved]
  - Tooth loss [Unknown]
  - Cholecystitis [Not Recovered/Not Resolved]
  - Biliary colic [Not Recovered/Not Resolved]
  - Somnolence [Recovering/Resolving]
  - Lethargy [Recovering/Resolving]
  - Nasopharyngitis [Recovered/Resolved]
  - Headache [Recovered/Resolved]
  - Inappropriate schedule of product discontinuation [Unknown]

NARRATIVE: CASE EVENT DATE: 20220501
